FAERS Safety Report 22647506 (Version 1)
Quarter: 2023Q2

REPORT INFORMATION
  Report Type: Spontaneous
  Country: RU (occurrence: RU)
  Receive Date: 20230628
  Receipt Date: 20230628
  Transmission Date: 20230722
  Serious: Yes (Hospitalization, Other)
  Sender: FDA-Public Use
  Company Number: RU-STERISCIENCE B.V.-2023-ST-001543

PATIENT
  Age: 69 Year
  Sex: Male
  Weight: 75 kg

DRUGS (4)
  1. VANCOMYCIN [Suspect]
     Active Substance: VANCOMYCIN
     Indication: Osteomyelitis chronic
     Dosage: 1 GRAM, BID
     Route: 065
  2. VANCOMYCIN [Suspect]
     Active Substance: VANCOMYCIN
     Indication: Staphylococcal infection
  3. POLYMYXIN B [Concomitant]
     Active Substance: POLYMYXIN B
     Indication: Osteomyelitis chronic
     Dosage: 100 MILLIGRAM, BID
     Route: 065
  4. POLYMYXIN B [Concomitant]
     Active Substance: POLYMYXIN B
     Indication: Staphylococcal infection

REACTIONS (2)
  - Encephalopathy [None]
  - Nephropathy [None]
